FAERS Safety Report 6680764-7 (Version None)
Quarter: 2010Q2

REPORT INFORMATION
  Report Type: 
  Country: None (occurrence: None)
  Receive Date: 20100414
  Receipt Date: 20100317
  Transmission Date: 20101027
  Serious: Yes (Other)
  Sender: FDA-Public Use
  Company Number: PHHY2010DE10936

PATIENT
  Sex: Female
  Weight: 52 kg

DRUGS (1)
  1. EXTAVIA [Suspect]
     Indication: MULTIPLE SCLEROSIS
     Dosage: 1 ML DAILY
     Route: 058
     Dates: start: 20091102, end: 20100304

REACTIONS (4)
  - DRY SKIN [None]
  - PRURITUS [None]
  - SKIN EXFOLIATION [None]
  - SKIN FISSURES [None]
